FAERS Safety Report 5088939-8 (Version None)
Quarter: 2006Q3

REPORT INFORMATION
  Report Type: 
  Country: None (occurrence: None)
  Receive Date: 20060822
  Receipt Date: 20060803
  Transmission Date: 20061208
  Serious: Yes (Other)
  Sender: FDA-Public Use
  Company Number: JP200607001386

PATIENT
  Age: 71 Year
  Sex: Female
  Weight: 36.9 kg

DRUGS (6)
  1. RALOXIFENE HCL [Suspect]
     Dosage: 60 MG, DAILY (1/D), ORAL
     Route: 048
     Dates: start: 20041222, end: 20050112
  2. RALOXIFENE HCL [Suspect]
     Dosage: 60 MG, DAILY (1/D), ORAL
     Route: 048
     Dates: start: 20050309
  3. ALFAROL (ALFACALCIDOL) [Concomitant]
  4. ASPARA-CA (ASPARTATE CALCIUM) [Concomitant]
  5. MECOBALAMIN (MECOBALAMIN) [Concomitant]
  6. MOHRUS (KETOPROFEN) TAPE [Concomitant]

REACTIONS (2)
  - FALL [None]
  - LOWER LIMB FRACTURE [None]
